FAERS Safety Report 12333183 (Version 1)
Quarter: 2016Q2

REPORT INFORMATION
  Report Type: Spontaneous
  Country: US (occurrence: US)
  Receive Date: 20160504
  Receipt Date: 20160504
  Transmission Date: 20160815
  Serious: No
  Sender: FDA-Public Use
  Company Number: US-ROCHE-ITM201505IM016913

PATIENT
  Sex: Female
  Weight: 51.3 kg

DRUGS (3)
  1. ESBRIET [Suspect]
     Active Substance: PIRFENIDONE
     Indication: IDIOPATHIC PULMONARY FIBROSIS
     Route: 048
     Dates: start: 20150122
  2. ESBRIET [Suspect]
     Active Substance: PIRFENIDONE
     Dosage: 1602 MG
     Route: 048
  3. ESBRIET [Suspect]
     Active Substance: PIRFENIDONE
     Dosage: 2403 MG
     Route: 048

REACTIONS (2)
  - Abdominal discomfort [Not Recovered/Not Resolved]
  - Malaise [Recovered/Resolved]
